FAERS Safety Report 12532135 (Version 9)
Quarter: 2017Q4

REPORT INFORMATION
  Report Type: Spontaneous
  Country: US (occurrence: US)
  Receive Date: 20160706
  Receipt Date: 20171117
  Transmission Date: 20180320
  Serious: Yes (Other)
  Sender: FDA-Public Use
  Company Number: US-SAOL THERAPEUTICS-2016SAO00077

PATIENT
  Age: 63 Year
  Sex: Female

DRUGS (16)
  1. SUFENTANYL [Suspect]
     Active Substance: SUFENTANIL
     Dosage: 28.56 ?G, \DAY
  2. FUROSEMIDE. [Concomitant]
     Active Substance: FUROSEMIDE
  3. BACLOFEN. [Suspect]
     Active Substance: BACLOFEN
     Dosage: 337 ?G, \DAY
  4. FENTANYL. [Suspect]
     Active Substance: FENTANYL
     Dosage: 25 ?G, \DAY
     Route: 037
  5. NEURONTIN [Concomitant]
     Active Substance: GABAPENTIN
  6. SUFENTANYL [Suspect]
     Active Substance: SUFENTANIL
     Dosage: 29.24 ?G, \DAY
     Route: 037
  7. LIORESAL [Suspect]
     Active Substance: BACLOFEN
     Dosage: 200 ?G, \DAY
     Dates: start: 20160826
  8. SUFENTANYL [Suspect]
     Active Substance: SUFENTANIL
     Dosage: 14.18 ?G, \DAY
     Dates: start: 20160829
  9. LIORESAL [Suspect]
     Active Substance: BACLOFEN
     Dosage: 368.6 ?G, \DAY
  10. LIORESAL [Suspect]
     Active Substance: BACLOFEN
     Indication: MUSCLE SPASTICITY
     Dosage: 377.2 ?G, \DAY
     Route: 037
  11. LIORESAL [Suspect]
     Active Substance: BACLOFEN
     Dosage: 183 ?G, \DAY
     Dates: start: 20160829
  12. FENTANYL. [Suspect]
     Active Substance: FENTANYL
     Dosage: 24 ?G, \DAY
  13. SUFENTANYL [Suspect]
     Active Substance: SUFENTANIL
     Dosage: 15.51 ?G, \DAY
     Dates: start: 20160826
  14. ZANAFLEX [Concomitant]
     Active Substance: TIZANIDINE HYDROCHLORIDE
     Dosage: UNK, AS NEEDED
     Route: 048
  15. LIORESAL [Suspect]
     Active Substance: BACLOFEN
     Indication: MULTIPLE SCLEROSIS
     Dosage: 324-367 ?G, \DAY
     Route: 037
  16. HYCLATE [Concomitant]

REACTIONS (21)
  - Shoulder arthroplasty [Unknown]
  - Systemic lupus erythematosus [Unknown]
  - Sleep disorder [Not Recovered/Not Resolved]
  - Device kink [Recovered/Resolved]
  - Loss of consciousness [Unknown]
  - Malaise [Not Recovered/Not Resolved]
  - Puncture site discharge [Recovered/Resolved]
  - Personality change [Unknown]
  - Drug withdrawal syndrome [Unknown]
  - Flank pain [Unknown]
  - Emotional distress [Unknown]
  - Complication associated with device [Recovered/Resolved]
  - Rotator cuff syndrome [Recovered/Resolved]
  - Device failure [Unknown]
  - Crying [Unknown]
  - Sedation [Not Recovered/Not Resolved]
  - Medical device site pain [Unknown]
  - Loss of personal independence in daily activities [Not Recovered/Not Resolved]
  - Muscle spasms [Unknown]
  - Implant site swelling [Unknown]
  - Implant site pain [Unknown]

NARRATIVE: CASE EVENT DATE: 2014
